FAERS Safety Report 23600465 (Version 1)
Quarter: 2024Q1

REPORT INFORMATION
  Report Type: Spontaneous
  Country: CN (occurrence: CN)
  Receive Date: 20240306
  Receipt Date: 20240306
  Transmission Date: 20240409
  Serious: Yes (Hospitalization)
  Sender: FDA-Public Use
  Company Number: CN-ASTELLAS-2024US006038

PATIENT
  Age: 54 Year
  Sex: Male
  Weight: 71 kg

DRUGS (6)
  1. TAMSULOSIN HYDROCHLORIDE [Suspect]
     Active Substance: TAMSULOSIN HYDROCHLORIDE
     Indication: Pneumonia
     Dosage: AT, AT 09:57:33, 0.2 MG, ONCE DAILY
     Route: 048
     Dates: start: 20240221, end: 20240222
  2. TAMSULOSIN HYDROCHLORIDE [Suspect]
     Active Substance: TAMSULOSIN HYDROCHLORIDE
     Indication: Asthma
  3. TAMSULOSIN HYDROCHLORIDE [Suspect]
     Active Substance: TAMSULOSIN HYDROCHLORIDE
     Indication: Type 2 diabetes mellitus
  4. MIRABEGRON [Suspect]
     Active Substance: MIRABEGRON
     Indication: Pneumonia
     Dosage: 50 MG, QD
     Route: 048
     Dates: start: 20240221, end: 20240222
  5. MIRABEGRON [Suspect]
     Active Substance: MIRABEGRON
     Indication: Asthma
  6. MIRABEGRON [Suspect]
     Active Substance: MIRABEGRON
     Indication: Type 2 diabetes mellitus

REACTIONS (9)
  - Chest discomfort [Recovering/Resolving]
  - Palpitations [Recovering/Resolving]
  - Dizziness [Recovering/Resolving]
  - Nausea [Recovering/Resolving]
  - Decreased appetite [Recovering/Resolving]
  - Vomiting [Recovering/Resolving]
  - Product use in unapproved indication [Unknown]
  - Feeding disorder [Recovering/Resolving]
  - Vertigo [Recovering/Resolving]

NARRATIVE: CASE EVENT DATE: 20240221
